FAERS Safety Report 22166034 (Version 4)
Quarter: 2023Q4

REPORT INFORMATION
  Report Type: Report from Study
  Country: CA (occurrence: None)
  Receive Date: 20230403
  Receipt Date: 20231005
  Transmission Date: 20240109
  Serious: Yes (Hospitalization)
  Sender: FDA-Public Use
  Company Number: CA-ROCHE-3198314

PATIENT
  Age: 48 Year
  Sex: Female
  Weight: 47 kg

DRUGS (7)
  1. MOSUNETUZUMAB [Suspect]
     Active Substance: MOSUNETUZUMAB
     Indication: B-cell lymphoma
     Route: 058
     Dates: start: 20220322
  2. MOSUNETUZUMAB [Suspect]
     Active Substance: MOSUNETUZUMAB
     Indication: Chronic lymphocytic leukaemia
     Dosage: ON 13/SEP/2022, SHE RECEIVED MOST RECENT DOSE OF MOSUNETUZUMAB PRIOR TO EVENT ONSET DATE
     Route: 058
  3. ACETAMINOPHEN [Concomitant]
     Active Substance: ACETAMINOPHEN
     Indication: Pain
     Route: 048
     Dates: start: 20220315
  4. HYDROCORTISONE [Concomitant]
     Active Substance: HYDROCORTISONE
     Indication: Injection site reaction
     Route: 061
     Dates: start: 20220329
  5. TERBINAFINE [Concomitant]
     Active Substance: TERBINAFINE
     Indication: Dermatitis bullous
     Route: 061
     Dates: start: 202208, end: 202212
  6. CLOBETASOL [Concomitant]
     Active Substance: CLOBETASOL
     Indication: Rash
     Route: 061
     Dates: start: 202208, end: 202212
  7. BETADERM [Concomitant]
     Active Substance: BETAMETHASONE VALERATE
     Indication: Rash
     Route: 061
     Dates: start: 202209, end: 202212

REACTIONS (1)
  - Herpes zoster [Recovering/Resolving]

NARRATIVE: CASE EVENT DATE: 20221010
